FAERS Safety Report 6481463-7 (Version None)
Quarter: 2009Q4

REPORT INFORMATION
  Report Type: 
  Country: None (occurrence: None)
  Receive Date: 20091208
  Receipt Date: 20090318
  Transmission Date: 20100525
  Serious: No
  Sender: FDA-Public Use
  Company Number: US-AMGEN-KDL338957

PATIENT
  Sex: Female

DRUGS (3)
  1. ENBREL [Suspect]
     Indication: PSORIASIS
     Dates: start: 20081201, end: 20090317
  2. ENBREL [Suspect]
     Indication: PSORIATIC ARTHROPATHY
  3. UNSPECIFIED TOPICAL PRODUCT [Concomitant]

REACTIONS (2)
  - MOBILITY DECREASED [None]
  - PSORIATIC ARTHROPATHY [None]
